FAERS Safety Report 7023822-X (Version None)
Quarter: 2010Q4

REPORT INFORMATION
  Report Type: 
  Country: None (occurrence: None)
  Receive Date: 20101001
  Receipt Date: 20100930
  Transmission Date: 20110411
  Serious: Yes (Death, Hospitalization, Other)
  Sender: FDA-Public Use
  Company Number: US-ASTRAZENECA-2006UW07752

PATIENT
  Age: 48 Year
  Sex: Male
  Weight: 81.8 kg

DRUGS (60)
  1. SEROQUEL [Suspect]
     Indication: INSOMNIA
     Dosage: 25-400 MG
     Route: 048
     Dates: start: 20020402
  2. SEROQUEL [Suspect]
     Indication: ANXIETY
     Dosage: 25-400 MG
     Route: 048
     Dates: start: 20020402
  3. SEROQUEL [Suspect]
     Indication: DEPRESSION
     Dosage: 25-400 MG
     Route: 048
     Dates: start: 20020402
  4. SEROQUEL [Suspect]
     Indication: NERVOUSNESS
     Dosage: 25-400 MG
     Route: 048
     Dates: start: 20020402
  5. SEROQUEL [Suspect]
     Dosage: 50-500 MG
     Route: 048
     Dates: start: 20020712, end: 20040503
  6. SEROQUEL [Suspect]
     Dosage: 50-500 MG
     Route: 048
     Dates: start: 20020712, end: 20040503
  7. SEROQUEL [Suspect]
     Dosage: 50-500 MG
     Route: 048
     Dates: start: 20020712, end: 20040503
  8. SEROQUEL [Suspect]
     Dosage: 50-500 MG
     Route: 048
     Dates: start: 20020712, end: 20040503
  9. SEROQUEL [Suspect]
     Dosage: 400-600 MG
     Route: 048
     Dates: start: 20031123, end: 20041205
  10. SEROQUEL [Suspect]
     Dosage: 400-600 MG
     Route: 048
     Dates: start: 20031123, end: 20041205
  11. SEROQUEL [Suspect]
     Dosage: 400-600 MG
     Route: 048
     Dates: start: 20031123, end: 20041205
  12. SEROQUEL [Suspect]
     Dosage: 400-600 MG
     Route: 048
     Dates: start: 20031123, end: 20041205
  13. SEROQUEL [Suspect]
     Route: 048
     Dates: start: 20041115, end: 20041123
  14. SEROQUEL [Suspect]
     Route: 048
     Dates: start: 20041115, end: 20041123
  15. SEROQUEL [Suspect]
     Route: 048
     Dates: start: 20041115, end: 20041123
  16. SEROQUEL [Suspect]
     Route: 048
     Dates: start: 20041115, end: 20041123
  17. SEROQUEL [Suspect]
     Route: 048
     Dates: start: 20050120, end: 20050709
  18. SEROQUEL [Suspect]
     Route: 048
     Dates: start: 20050120, end: 20050709
  19. SEROQUEL [Suspect]
     Route: 048
     Dates: start: 20050120, end: 20050709
  20. SEROQUEL [Suspect]
     Route: 048
     Dates: start: 20050120, end: 20050709
  21. LORTAB [Concomitant]
  22. PAXIL [Concomitant]
  23. VALIUM [Concomitant]
  24. DEMROL [Concomitant]
  25. TENORMIN [Concomitant]
  26. SOMA [Concomitant]
  27. PERI-COLACE [Concomitant]
  28. KEFLEX [Concomitant]
  29. LANTUS [Concomitant]
  30. NOVOLOG INSULINE [Concomitant]
  31. PROTONIX [Concomitant]
  32. POTASSIUM CHLORIDE [Concomitant]
  33. AMBIEN [Concomitant]
  34. FLOMAX [Concomitant]
  35. LOPID [Concomitant]
  36. VASOTEC [Concomitant]
  37. DURAGESIC-100 [Concomitant]
  38. PEPCID [Concomitant]
  39. URECHOLINE [Concomitant]
  40. DESYREL [Concomitant]
  41. EFFEXOR [Concomitant]
     Dates: start: 20030109
  42. DILAUDID [Concomitant]
  43. COUMADIN [Concomitant]
  44. LOPRESSOR [Concomitant]
  45. XANAX [Concomitant]
  46. AVANDIA [Concomitant]
  47. PREVACID [Concomitant]
  48. ISORDIL [Concomitant]
  49. TRAVATAN [Concomitant]
  50. TIMOPTIC [Concomitant]
  51. LANOXIN [Concomitant]
  52. DROPERIDOL [Concomitant]
  53. TYLOX [Concomitant]
  54. MS CONTIN [Concomitant]
  55. CELEBREX [Concomitant]
  56. AVANDAMET [Concomitant]
  57. BENADRYL [Concomitant]
  58. RANITIDINE [Concomitant]
  59. HYDROCORTISONE [Concomitant]
  60. OXYTOCIN [Concomitant]

REACTIONS (8)
  - ARTHROPATHY [None]
  - CARDIAC DISORDER [None]
  - CIRCULATORY COLLAPSE [None]
  - DEATH [None]
  - DIABETES MELLITUS [None]
  - NEUROPATHY PERIPHERAL [None]
  - SICK SINUS SYNDROME [None]
  - TYPE 2 DIABETES MELLITUS [None]
